FAERS Safety Report 5333697-2 (Version None)
Quarter: 2007Q2

REPORT INFORMATION
  Report Type: 
  Country: None (occurrence: None)
  Receive Date: 20070524
  Receipt Date: 20070516
  Transmission Date: 20071010
  Serious: Yes (Other)
  Sender: FDA-Public Use
  Company Number: B0464736A

PATIENT
  Sex: Male
  Weight: 3.5 kg

DRUGS (10)
  1. PAXIL [Suspect]
     Dosage: 10MG TWICE PER DAY
     Dates: start: 20040330
  2. HALOPERIDOL [Suspect]
     Dosage: .75MG TWICE PER DAY
     Dates: start: 20040330
  3. DEPAKENE [Suspect]
     Dosage: 200MG TWICE PER DAY
     Dates: start: 20040330
  4. RIZE [Concomitant]
     Dates: start: 20040330, end: 20050812
  5. RIZE [Concomitant]
     Dates: start: 20060301
  6. CALONAL [Concomitant]
     Dates: start: 20050826, end: 20051004
  7. CHINESE MEDICINE [Concomitant]
     Dosage: 7.5G PER DAY
     Dates: start: 20051005, end: 20060125
  8. SUCRALFATE [Concomitant]
     Dosage: 30ML PER DAY
     Dates: start: 20060123, end: 20060206
  9. GASTER D [Concomitant]
     Dosage: 40MG PER DAY
     Dates: start: 20060213, end: 20060305
  10. MARZULENE-S [Concomitant]
     Dosage: 1.5G PER DAY
     Dates: start: 20060206, end: 20060305

REACTIONS (14)
  - DRUG EXPOSURE DURING PREGNANCY [None]
  - DRUG WITHDRAWAL SYNDROME NEONATAL [None]
  - DYSPNOEA [None]
  - HAEMOPTYSIS [None]
  - INTERCOSTAL RETRACTION [None]
  - IRRITABILITY [None]
  - JAUNDICE NEONATAL [None]
  - NEONATAL RESPIRATORY ACIDOSIS [None]
  - PULMONARY HAEMORRHAGE [None]
  - RESPIRATION ABNORMAL [None]
  - RESPIRATORY DISORDER NEONATAL [None]
  - RESTLESSNESS [None]
  - TACHYPNOEA [None]
  - TRANSIENT TACHYPNOEA OF THE NEWBORN [None]
